FAERS Safety Report 9175255 (Version 1)
Quarter: 2013Q1

REPORT INFORMATION
  Report Type: Spontaneous
  Country: IT (occurrence: IT)
  Receive Date: 20130320
  Receipt Date: 20130320
  Transmission Date: 20140127
  Serious: Yes (Other)
  Sender: FDA-Public Use
  Company Number: IT-TEVA-391597ISR

PATIENT
  Age: 76 Year
  Sex: Female

DRUGS (1)
  1. GABAPENTIN [Suspect]
     Indication: PERIPHERAL SENSORY NEUROPATHY
     Dosage: 900 MILLIGRAM DAILY;
     Route: 065

REACTIONS (1)
  - Delirium [Recovering/Resolving]
